FAERS Safety Report 7392466-2 (Version None)
Quarter: 2011Q2

REPORT INFORMATION
  Report Type: 
  Country: None (occurrence: None)
  Receive Date: 20110404
  Receipt Date: 20101202
  Transmission Date: 20111010
  Serious: No
  Sender: FDA-Public Use
  Company Number: US-BAYER-2011-028556

PATIENT
  Sex: Male
  Weight: 86 kg

DRUGS (1)
  1. ONE A DAY MEN'S PRO EDGE MULTIVITAMIN [Suspect]
     Indication: VITAMIN SUPPLEMENTATION
     Dosage: 1 DF, QD
     Route: 048
     Dates: start: 20101120

REACTIONS (2)
  - NAUSEA [None]
  - HEADACHE [None]
